FAERS Safety Report 5318805-1 (Version None)
Quarter: 2007Q2

REPORT INFORMATION
  Report Type: 
  Country: None (occurrence: None)
  Receive Date: 20070504
  Receipt Date: 20070504
  Transmission Date: 20071010
  Serious: Yes (Other)
  Sender: FDA-Public Use
  Company Number: None

PATIENT
  Age: 42 Year
  Sex: Female
  Weight: 60.3284 kg

DRUGS (1)
  1. KLONOPIN [Suspect]
     Indication: INSOMNIA
     Dosage: 1 MG 1 AT NIGHT PO
     Route: 048
     Dates: start: 20051201, end: 20070130

REACTIONS (4)
  - DRUG WITHDRAWAL SYNDROME [None]
  - EMOTIONAL DISORDER [None]
  - NIGHTMARE [None]
  - SLEEP DISORDER [None]
